FAERS Safety Report 12419766 (Version 1)
Quarter: 2016Q2

REPORT INFORMATION
  Report Type: Spontaneous
  Country: US (occurrence: US)
  Receive Date: 20160531
  Receipt Date: 20160531
  Transmission Date: 20160815
  Serious: Yes (Other)
  Sender: FDA-Public Use
  Company Number: US-BAYER-2016-102769

PATIENT
  Sex: Female

DRUGS (1)
  1. COPPERTONE OIL FREE FACES SUNSCREEN SPF 30 [Suspect]
     Active Substance: AVOBENZONE\HOMOSALATE\OCTISALATE\OCTOCRYLENE\OXYBENZONE
     Dosage: TWICE

REACTIONS (8)
  - Eye pain [None]
  - Eye swelling [None]
  - Accidental exposure to product [None]
  - Patient dissatisfaction with treatment [None]
  - Blindness [None]
  - Lacrimation increased [None]
  - Adverse drug reaction [None]
  - Eye irritation [None]

NARRATIVE: CASE EVENT DATE: 20160523
